FAERS Safety Report 7902025 (Version 3)
Quarter: 2013Q3

REPORT INFORMATION
  Report Type: Spontaneous
  Country: HU (occurrence: None)
  Receive Date: 20110323
  Receipt Date: 20130705
  Transmission Date: 20140515
  Serious: Yes (Hospitalization)
  Sender: FDA-Public Use
  Company Number: HU-022175

PATIENT
  Age: 76 Year
  Sex: Male
  Weight: 71 kg

DRUGS (1)
  1. CHLORAMBUCIL [Suspect]
     Indication: CHRONIC LYMPHOCYTIC LEUKAEMIA
     Dosage: CYCLIC, UNKNOWN
     Dates: start: 20101026

REACTIONS (7)
  - Febrile neutropenia [None]
  - Bronchopneumonia [None]
  - Ventricular tachycardia [None]
  - Haemoglobin decreased [None]
  - Haematocrit decreased [None]
  - Platelet count decreased [None]
  - White blood cell count decreased [None]
